FAERS Safety Report 25970795 (Version 1)
Quarter: 2025Q4

REPORT INFORMATION
  Report Type: Spontaneous
  Country: JP (occurrence: JP)
  Receive Date: 20251028
  Receipt Date: 20251028
  Transmission Date: 20260117
  Serious: Yes (Other)
  Sender: UCB
  Company Number: JP-UCBJ-CD202514212UCBPHAPROD

PATIENT

DRUGS (5)
  1. FINTEPLA [Suspect]
     Active Substance: FENFLURAMINE
     Indication: Epilepsy
     Dosage: UNK
  2. FINTEPLA [Suspect]
     Active Substance: FENFLURAMINE
     Dosage: 0.2 MILLIGRAM/KILOGRAM PER DAY
  3. STIRIPENTOL [Concomitant]
     Active Substance: STIRIPENTOL
     Indication: Epilepsy
     Dosage: UNK
  4. VALPROATE SODIUM [Concomitant]
     Active Substance: VALPROATE SODIUM
     Indication: Product used for unknown indication
     Dosage: UNK
  5. CLOBAZAM [Concomitant]
     Active Substance: CLOBAZAM
     Indication: Product used for unknown indication
     Dosage: UNK

REACTIONS (1)
  - Epilepsy [Not Recovered/Not Resolved]
